FAERS Safety Report 9745422 (Version 1)
Quarter: 2013Q4

REPORT INFORMATION
  Report Type: Report from Study
  Country: CL (occurrence: CL)
  Receive Date: 20131211
  Receipt Date: 20131211
  Transmission Date: 20140711
  Serious: Yes (Death)
  Sender: FDA-Public Use
  Company Number: PHHY2013CL144567

PATIENT
  Age: 73 Year
  Sex: Female

DRUGS (1)
  1. TAREG [Suspect]
     Dosage: UNK UKN, UNK
     Dates: start: 2004

REACTIONS (1)
  - Death [Fatal]
